FAERS Safety Report 8452146-9 (Version None)
Quarter: 2012Q2

REPORT INFORMATION
  Report Type: 
  Country: None (occurrence: None)
  Receive Date: 20120620
  Receipt Date: 20120423
  Transmission Date: 20120825
  Serious: No
  Sender: FDA-Public Use
  Company Number: US-VERTEX PHARMACEUTICALS INC.-AE-2012-004675

PATIENT
  Sex: Male
  Weight: 96.702 kg

DRUGS (3)
  1. PEGASYS [Concomitant]
     Indication: HEPATITIS C
     Dates: start: 20120305
  2. INCIVEK [Suspect]
     Indication: HEPATITIS C
     Route: 048
     Dates: start: 20120305, end: 20120420
  3. RIBAPACK [Concomitant]
     Indication: HEPATITIS C
     Route: 048
     Dates: start: 20120305

REACTIONS (4)
  - HAEMORRHOIDAL HAEMORRHAGE [None]
  - PRURITUS [None]
  - RASH [None]
  - IRRITABILITY [None]
